FAERS Safety Report 25863870 (Version 1)
Quarter: 2025Q3

REPORT INFORMATION
  Report Type: Spontaneous
  Country: US (occurrence: US)
  Receive Date: 20250930
  Receipt Date: 20250930
  Transmission Date: 20251020
  Serious: No
  Sender: SECURA BIO
  Company Number: US-SECURA BIO, INC.-SECUR-2025-US002098

PATIENT
  Sex: Male

DRUGS (2)
  1. COPIKTRA [Suspect]
     Active Substance: DUVELISIB
     Indication: T-cell lymphoma
     Dosage: 75 MILLIGRAM, BID FOR 8WKS
     Route: 048
  2. COPIKTRA [Suspect]
     Active Substance: DUVELISIB

REACTIONS (1)
  - Off label use [Unknown]
